FAERS Safety Report 6671022-5 (Version None)
Quarter: 2010Q2

REPORT INFORMATION
  Report Type: 
  Country: None (occurrence: None)
  Receive Date: 20100406
  Receipt Date: 20100406
  Transmission Date: 20101027
  Serious: No
  Sender: FDA-Public Use
  Company Number: None

PATIENT
  Age: 67 Year
  Sex: Male
  Weight: 77.1115 kg

DRUGS (1)
  1. ABREVA [Suspect]
     Indication: ORAL HERPES
     Dosage: 10% TOPICAL
     Route: 061
     Dates: start: 20100316, end: 20100326

REACTIONS (2)
  - NO THERAPEUTIC RESPONSE [None]
  - ORAL HERPES [None]
